FAERS Safety Report 21335240 (Version 2)
Quarter: 2023Q2

REPORT INFORMATION
  Report Type: Spontaneous
  Country: US (occurrence: US)
  Receive Date: 20220915
  Receipt Date: 20230620
  Transmission Date: 20230722
  Serious: No
  Sender: FDA-Public Use
  Company Number: US-BEIGENE USA INC-BGN-2022-009137

PATIENT

DRUGS (6)
  1. BRUKINSA [Suspect]
     Active Substance: ZANUBRUTINIB
     Indication: Waldenstrom^s macroglobulinaemia
     Dosage: 2 CAPSULES IN MORNING AND 2 CAPSULES IN EVENING, BID
     Route: 048
     Dates: start: 20220612, end: 20220811
  2. BRUKINSA [Suspect]
     Active Substance: ZANUBRUTINIB
     Dosage: FULL DOSE OF 2 CAPSULES IN MORNING AND 2 CAPSULES IN EVENING EVERY OTHER DAY FOR A WEEK AND A HALF B
     Route: 048
     Dates: start: 20220812, end: 20220822
  3. BRUKINSA [Suspect]
     Active Substance: ZANUBRUTINIB
     Dosage: UNK UNK, BID
     Route: 048
     Dates: start: 20220829
  4. BRUKINSA [Suspect]
     Active Substance: ZANUBRUTINIB
     Dosage: 1 CAPSULE IN THE MORNING AND ONE CAPSULE AT NIGHT
     Route: 048
     Dates: start: 202301
  5. CHOLESTEROL [Concomitant]
     Active Substance: CHOLESTEROL
     Indication: Blood cholesterol
  6. CLARITIN [Concomitant]
     Active Substance: LORATADINE

REACTIONS (12)
  - Upper respiratory tract congestion [Unknown]
  - Cough [Unknown]
  - Feeling abnormal [Unknown]
  - Fatigue [Unknown]
  - Pruritus [Not Recovered/Not Resolved]
  - Headache [Recovered/Resolved]
  - Rash [Not Recovered/Not Resolved]
  - Scratch [Not Recovered/Not Resolved]
  - Neutrophil count decreased [Recovering/Resolving]
  - Illness [Recovering/Resolving]
  - Product administration interrupted [Unknown]
  - Underdose [Unknown]
